FAERS Safety Report 13155254 (Version 1)
Quarter: 2017Q1

REPORT INFORMATION
  Report Type: Not Available
  Country: US (occurrence: US)
  Receive Date: 20170126
  Receipt Date: 20170126
  Transmission Date: 20170428
  Serious: No
  Sender: FDA-Public Use
  Company Number: US-ANIPHARMA-2016-US-000415

PATIENT
  Age: 72 Year
  Sex: Female
  Weight: 102.06 kg

DRUGS (4)
  1. HYDROCHLOROTHIAZIDE. [Concomitant]
     Active Substance: HYDROCHLOROTHIAZIDE
  2. CLARITIN [Concomitant]
     Active Substance: LORATADINE
  3. CARVEDILOL. [Concomitant]
     Active Substance: CARVEDILOL
  4. REGLAN [Suspect]
     Active Substance: METOCLOPRAMIDE HYDROCHLORIDE
     Dosage: 1 TABLET TWICE DAILY
     Route: 048
     Dates: start: 20150228, end: 20160123

REACTIONS (3)
  - Anxiety [Unknown]
  - Tremor [Unknown]
  - Night sweats [Unknown]

NARRATIVE: CASE EVENT DATE: 20160123
